FAERS Safety Report 10761624 (Version 1)
Quarter: 2015Q1

REPORT INFORMATION
  Report Type: Spontaneous
  Country: US (occurrence: None)
  Receive Date: 20150128
  Receipt Date: 20150128
  Transmission Date: 20150721
  Serious: Yes (Other)
  Sender: FDA-Public Use
  Company Number: 1443362

PATIENT
  Age: 81 Year
  Sex: Female

DRUGS (2)
  1. TREANDA (BENDAMUSTINE) [Concomitant]
  2. RITUXAN [Suspect]
     Active Substance: RITUXIMAB
     Indication: NON-HODGKIN^S LYMPHOMA

REACTIONS (3)
  - Formication [None]
  - Respiratory distress [None]
  - Anaphylactic shock [None]

NARRATIVE: CASE EVENT DATE: 2014
